FAERS Safety Report 19074263 (Version 3)
Quarter: 2021Q3

REPORT INFORMATION
  Report Type: Spontaneous
  Country: US (occurrence: US)
  Receive Date: 20210330
  Receipt Date: 20210723
  Transmission Date: 20211014
  Serious: Yes (Other)
  Sender: FDA-Public Use
  Company Number: US-BAYER-2021-110664

PATIENT
  Age: 72 Year
  Sex: Male

DRUGS (4)
  1. KOGENATE FS [Suspect]
     Active Substance: ANTIHEMOPHILIC FACTOR, HUMAN RECOMBINANT
     Indication: FACTOR VIII DEFICIENCY
     Dosage: UNK (INFUSE~ 6000 UNITS (+/?10% IVP EVERY 12?24 HOURS AS NEEDED FOR TRAUMA OR BLEEDING WHILE ON HEML
     Route: 042
     Dates: start: 20130329
  2. KOGENATE FS [Suspect]
     Active Substance: ANTIHEMOPHILIC FACTOR, HUMAN RECOMBINANT
     Indication: FACTOR VIII DEFICIENCY
     Dosage: 6000 UNITS IV EVERY 24 HOURS; WAS GIVEN 2 DOSES OF KOGENATE PRE AND POST SURGERY FOR CONTINUATION OF
     Route: 042
     Dates: start: 20210308, end: 20210309
  3. KOGENATE FS [Suspect]
     Active Substance: ANTIHEMOPHILIC FACTOR, HUMAN RECOMBINANT
     Indication: FACTOR VIII DEFICIENCY
     Dosage: UNK (3 DOSES TO TREAT THE LEG BLEED)
     Route: 042
  4. HEMLIBRA [Concomitant]
     Active Substance: EMICIZUMAB-KXWH

REACTIONS (2)
  - Post procedural haemorrhage [None]
  - Skin neoplasm excision [None]
